FAERS Safety Report 20817144 (Version 2)
Quarter: 2022Q3

REPORT INFORMATION
  Report Type: Other
  Country: GB (occurrence: None)
  Receive Date: 20220512
  Receipt Date: 20220828
  Transmission Date: 20221027
  Serious: Yes (Hospitalization)
  Sender: FDA-Public Use
  Company Number: GB-ROCHE-3091018

PATIENT
  Age: 5 Month
  Sex: Male

DRUGS (1)
  1. RISDIPLAM [Suspect]
     Active Substance: RISDIPLAM
     Indication: Spinal muscular atrophy
     Dosage: STRENGTH: 0.75MG/ML ONE BOTTLE SUPPLIED TODAY 04 MAY 2022,
     Route: 048
     Dates: start: 20220328

REACTIONS (1)
  - Weight increased [Unknown]
